FAERS Safety Report 7750835-2 (Version None)
Quarter: 2011Q3

REPORT INFORMATION
  Report Type: 
  Country: None (occurrence: None)
  Receive Date: 20110914
  Receipt Date: 20110907
  Transmission Date: 20111222
  Serious: Yes (Hospitalization)
  Sender: FDA-Public Use
  Company Number: CA-JNJFOC-20110711173

PATIENT
  Age: 78 Year
  Sex: Male
  Weight: 75 kg

DRUGS (7)
  1. METOPROLOL [Concomitant]
     Indication: ILL-DEFINED DISORDER
  2. ALFUZOSIN HCL [Concomitant]
     Indication: ILL-DEFINED DISORDER
  3. PRAVASTATIN [Concomitant]
     Indication: ILL-DEFINED DISORDER
  4. AVALIDE [Concomitant]
     Indication: ILL-DEFINED DISORDER
  5. XARELTO [Suspect]
     Indication: THROMBOSIS PROPHYLAXIS
     Route: 048
     Dates: start: 20110315, end: 20110413
  6. PANTOPRAZOLE [Concomitant]
     Indication: ILL-DEFINED DISORDER
  7. TYLENOL W/ CODEINE [Concomitant]
     Indication: ILL-DEFINED DISORDER

REACTIONS (1)
  - LIVER ABSCESS [None]
